FAERS Safety Report 12999801 (Version 1)
Quarter: 2016Q4

REPORT INFORMATION
  Report Type: Spontaneous
  Country: US (occurrence: US)
  Receive Date: 20161205
  Receipt Date: 20161205
  Transmission Date: 20170207
  Serious: Yes (Death)
  Sender: FDA-Public Use
  Company Number: US-BAYER-2016-229644

PATIENT
  Age: 46 Year
  Sex: Female

DRUGS (3)
  1. ULTRAVIST [Suspect]
     Active Substance: IOPROMIDE
     Indication: COMPUTERISED TOMOGRAM ABDOMEN
  2. ULTRAVIST [Suspect]
     Active Substance: IOPROMIDE
     Indication: MUSCLE STRAIN
  3. ULTRAVIST [Suspect]
     Active Substance: IOPROMIDE
     Indication: COMPUTERISED TOMOGRAM PELVIS
     Dosage: 100 ML, ONCE
     Route: 042
     Dates: start: 20161121, end: 20161121

REACTIONS (6)
  - Respiratory arrest [Fatal]
  - Retching [None]
  - Hypoaesthesia [None]
  - Unresponsive to stimuli [Fatal]
  - Dyspnoea [Fatal]
  - Pulse abnormal [Fatal]

NARRATIVE: CASE EVENT DATE: 20161121
